FAERS Safety Report 6966037-3 (Version None)
Quarter: 2010Q3

REPORT INFORMATION
  Report Type: 
  Country: None (occurrence: None)
  Receive Date: 20100903
  Receipt Date: 20100511
  Transmission Date: 20110219
  Serious: No
  Sender: FDA-Public Use
  Company Number: A0859130A

PATIENT
  Age: 35 Year
  Sex: Female

DRUGS (1)
  1. LAMICTAL [Suspect]
     Indication: BIPOLAR DISORDER
     Dosage: 100MG UNKNOWN
     Route: 048
     Dates: start: 20100223

REACTIONS (3)
  - ORAL PAIN [None]
  - STOMATITIS [None]
  - TONGUE EXFOLIATION [None]
